FAERS Safety Report 9146095 (Version 1)
Quarter: 2013Q1

REPORT INFORMATION
  Report Type: Spontaneous
  Country: US (occurrence: None)
  Receive Date: 20130227
  Receipt Date: 20130227
  Transmission Date: 20140127
  Serious: No
  Sender: FDA-Public Use
  Company Number: None

PATIENT
  Age: 51 Year
  Sex: Male

DRUGS (4)
  1. PEGASYS [Suspect]
     Dosage: 180 MCG  SUBCUTANEOUSLY EVERY WEEK
     Route: 058
     Dates: start: 201211
  2. NEUPOGEN [Concomitant]
  3. VICTRELIS [Concomitant]
  4. RIBAVIRIN [Concomitant]

REACTIONS (1)
  - Neuropathy peripheral [None]
